FAERS Safety Report 7892369-0 (Version None)
Quarter: 2011Q4

REPORT INFORMATION
  Report Type: 
  Country: None (occurrence: None)
  Receive Date: 20111101
  Receipt Date: 20111018
  Transmission Date: 20120403
  Serious: Yes (Other)
  Sender: FDA-Public Use
  Company Number: 1000024583

PATIENT
  Age: 47 Year
  Sex: Male

DRUGS (3)
  1. ESCITALOPRAM [Suspect]
     Indication: DEPRESSION
     Dosage: DAILY DOSE NOT REPORTED,GRADUALLY INCREASED (1 IN 1 D),ORAL, 30 MG (30 MG 1 IN 1 D) ORAL
     Route: 048
     Dates: start: 20080701
  2. ESCITALOPRAM [Suspect]
     Indication: DEPRESSION
     Dosage: DAILY DOSE NOT REPORTED,GRADUALLY INCREASED (1 IN 1 D),ORAL, 30 MG (30 MG 1 IN 1 D) ORAL
     Route: 048
     Dates: start: 20090501
  3. WELLBUTRIN (BUPROPION HYDROCHLORIDE)(TABLETS)(BUPROPION HYDROCHLORIDE) [Concomitant]

REACTIONS (1)
  - PNEUMONIA [None]
